FAERS Safety Report 8917015 (Version 2)
Quarter: 2012Q4

REPORT INFORMATION
  Report Type: 
  Country: US (occurrence: US)
  Receive Date: 20121120
  Receipt Date: 20121216
  Transmission Date: 20130627
  Serious: No
  Sender: FDA-Public Use
  Company Number: US-TEVA-370821USA

PATIENT
  Sex: Male

DRUGS (2)
  1. PROAIR HFA [Suspect]
     Dosage: every 4 hours as needed
     Route: 055
     Dates: start: 201205
  2. DULERA [Concomitant]

REACTIONS (3)
  - Teeth brittle [Not Recovered/Not Resolved]
  - Tooth loss [Unknown]
  - Endodontic procedure [Unknown]
